FAERS Safety Report 6833616-3 (Version None)
Quarter: 2010Q3

REPORT INFORMATION
  Report Type: 
  Country: None (occurrence: None)
  Receive Date: 20100712
  Receipt Date: 20070329
  Transmission Date: 20110219
  Serious: No
  Sender: FDA-Public Use
  Company Number: US-PFIZER INC-2007027284

PATIENT
  Sex: Female
  Weight: 66.22 kg

DRUGS (10)
  1. CHANTIX [Suspect]
     Indication: SMOKING CESSATION THERAPY
     Dates: start: 20070326
  2. INSULIN GLARGINE [Concomitant]
  3. INSULIN LISPRO [Concomitant]
  4. SOMA [Concomitant]
  5. LYRICA [Concomitant]
  6. LASIX [Concomitant]
  7. POTASSIUM [Concomitant]
  8. DECADRON [Concomitant]
  9. ALL OTHER THERAPEUTIC PRODUCTS [Concomitant]
  10. KENALOG [Concomitant]

REACTIONS (2)
  - NAUSEA [None]
  - VOMITING [None]
